FAERS Safety Report 17962816 (Version 1)
Quarter: 2020Q2

REPORT INFORMATION
  Report Type: Spontaneous
  Country: US (occurrence: US)
  Receive Date: 20200630
  Receipt Date: 20200630
  Transmission Date: 20200714
  Serious: No
  Sender: FDA-Public Use
  Company Number: US-INDIVIOR US-INDV-124436-2020

PATIENT
  Age: 45 Year
  Sex: Female

DRUGS (1)
  1. SUBLOCADE [Suspect]
     Active Substance: BUPRENORPHINE
     Indication: DRUG DEPENDENCE
     Dosage: 100 MILLIGRAM, QMO (PATIENT RECEIVED HER FOURTH INJECTION ON 09-APR-2020)
     Route: 058
     Dates: start: 2019

REACTIONS (3)
  - Injection site pain [Recovered/Resolved]
  - Product dose omission [Recovered/Resolved]
  - Injection site ulcer [Unknown]

NARRATIVE: CASE EVENT DATE: 2019
